FAERS Safety Report 24344191 (Version 1)
Quarter: 2024Q3

REPORT INFORMATION
  Report Type: Spontaneous
  Country: US (occurrence: US)
  Receive Date: 20240920
  Receipt Date: 20240920
  Transmission Date: 20241017
  Serious: Yes (Death, Other)
  Sender: BRISTOL MYERS SQUIBB
  Company Number: US-BRISTOL-MYERS SQUIBB COMPANY-2024-149336

PATIENT
  Age: 82 Year
  Sex: Male

DRUGS (1)
  1. POMALYST [Suspect]
     Active Substance: POMALIDOMIDE
     Indication: Thrombocytopenia
     Dosage: TAKE 1 CAPSULE BY MOUTH TWICE WEEKLY FOR 2 WEEKS ON AND 1 WEEK OFF FOR A 21 DAY CYCLE
     Route: 048

REACTIONS (1)
  - Death [Fatal]
